FAERS Safety Report 15655721 (Version 12)
Quarter: 2022Q2

REPORT INFORMATION
  Report Type: Other
  Country: DE (occurrence: None)
  Receive Date: 20181126
  Receipt Date: 20220409
  Transmission Date: 20220720
  Serious: Yes (Hospitalization, Other)
  Sender: FDA-Public Use
  Company Number: DE-ROCHE-2218337

PATIENT
  Age: 47 Year
  Sex: Male

DRUGS (2)
  1. OCREVUS [Suspect]
     Active Substance: OCRELIZUMAB
     Indication: Primary progressive multiple sclerosis
     Dosage: SUBSEQUENT DOSE OF 600 MG EVERY 175 DAYS
     Route: 042
     Dates: start: 20180501, end: 20190520
  2. PREGABALIN [Concomitant]
     Active Substance: PREGABALIN

REACTIONS (6)
  - Influenza [Recovering/Resolving]
  - Pneumonia [Recovered/Resolved]
  - Gait disturbance [Not Recovered/Not Resolved]
  - Blood pressure decreased [Recovered/Resolved]
  - Cardiovascular disorder [Recovered/Resolved]
  - Fatigue [Recovered/Resolved]

NARRATIVE: CASE EVENT DATE: 20180801
